FAERS Safety Report 8106705-3 (Version None)
Quarter: 2012Q1

REPORT INFORMATION
  Report Type: 
  Country: None (occurrence: None)
  Receive Date: 20120202
  Receipt Date: 20120120
  Transmission Date: 20120608
  Serious: Yes (Other)
  Sender: FDA-Public Use
  Company Number: CH-UCBSA-050074

PATIENT
  Age: 83 Year
  Sex: Female

DRUGS (3)
  1. KEPPRA [Suspect]
     Dosage: UNKNOWN DOSE
  2. KEPPRA [Suspect]
     Indication: GRAND MAL CONVULSION
     Dosage: TOTAL DAILY DOSE 750MG
  3. LAMOTRIGINE [Suspect]
     Indication: GRAND MAL CONVULSION
     Dosage: TOTAL DAILY DOSE 200MG

REACTIONS (1)
  - CHRONIC LYMPHOCYTIC LEUKAEMIA [None]
